FAERS Safety Report 6527302-7 (Version None)
Quarter: 2010Q1

REPORT INFORMATION
  Report Type: 
  Country: None (occurrence: None)
  Receive Date: 20100105
  Receipt Date: 20090114
  Transmission Date: 20100710
  Serious: No
  Sender: FDA-Public Use
  Company Number: US-TYCO HEALTHCARE/MALLINCKRODT-T200900058

PATIENT
  Age: 40 Year
  Sex: Female
  Weight: 68.027 kg

DRUGS (3)
  1. OPTIMARK [Suspect]
     Indication: NUCLEAR MAGNETIC RESONANCE IMAGING
     Dosage: UNK
     Route: 042
     Dates: start: 20090107, end: 20090107
  2. UNSPECIFIED THYROID MEDICATION [Concomitant]
     Indication: THYROID DISORDER
  3. IRON [Concomitant]
     Indication: IRON DEFICIENCY ANAEMIA
     Dosage: UNK
     Route: 048
     Dates: start: 20060101

REACTIONS (15)
  - ABDOMINAL DISTENSION [None]
  - ABDOMINAL PAIN [None]
  - ARRHYTHMIA [None]
  - CHEST PAIN [None]
  - DIZZINESS [None]
  - DRUG ADMINISTRATION ERROR [None]
  - FATIGUE [None]
  - HEADACHE [None]
  - INJECTION SITE EXTRAVASATION [None]
  - INJECTION SITE HAEMATOMA [None]
  - INJECTION SITE PAIN [None]
  - INJECTION SITE SWELLING [None]
  - NAUSEA [None]
  - RASH PAPULAR [None]
  - RASH PRURITIC [None]
